FAERS Safety Report 5626961-0 (Version None)
Quarter: 2008Q1

REPORT INFORMATION
  Report Type: 
  Country: None (occurrence: None)
  Receive Date: 20080130
  Receipt Date: 20071106
  Transmission Date: 20080703
  Serious: Yes (Other)
  Sender: FDA-Public Use
  Company Number: US-WYE-H01180707

PATIENT
  Sex: Female

DRUGS (1)
  1. CORDARONE [Suspect]
     Dates: end: 19990101

REACTIONS (2)
  - INTERSTITIAL LUNG DISEASE [None]
  - PULMONARY FIBROSIS [None]
